FAERS Safety Report 5591334-6 (Version None)
Quarter: 2008Q1

REPORT INFORMATION
  Report Type: 
  Country: None (occurrence: None)
  Receive Date: 20080115
  Receipt Date: 20080103
  Transmission Date: 20080703
  Serious: Yes (Hospitalization)
  Sender: FDA-Public Use
  Company Number: AU-AMGEN-US258931

PATIENT
  Sex: Male
  Weight: 72 kg

DRUGS (6)
  1. NEULASTA [Suspect]
     Indication: CHEMOTHERAPY
     Route: 058
     Dates: start: 20071208
  2. RITUXIMAB [Suspect]
     Route: 042
     Dates: start: 20070822, end: 20071205
  3. IFOSFAMIDE [Suspect]
     Route: 042
     Dates: start: 20070822, end: 20071207
  4. ETOPOSIDE [Suspect]
     Route: 042
     Dates: start: 20070822, end: 20071207
  5. MESNA [Concomitant]
     Route: 048
     Dates: start: 20071205, end: 20071207
  6. MESNA [Concomitant]
     Route: 042
     Dates: start: 20071205, end: 20071207

REACTIONS (2)
  - DRUG INEFFECTIVE [None]
  - FEBRILE NEUTROPENIA [None]
